FAERS Safety Report 10087237 (Version 1)
Quarter: 2014Q2

REPORT INFORMATION
  Report Type: Report from Study
  Country: GR (occurrence: GR)
  Receive Date: 20140418
  Receipt Date: 20140418
  Transmission Date: 20141212
  Serious: Yes (Hospitalization, Other)
  Sender: FDA-Public Use
  Company Number: GR-ABBVIE-14P-066-1225126-00

PATIENT
  Sex: Male

DRUGS (1)
  1. HUMIRA [Suspect]
     Indication: PSORIATIC ARTHROPATHY
     Route: 058
     Dates: start: 20130729, end: 201309

REACTIONS (2)
  - Prostatic disorder [Unknown]
  - Hernia [Unknown]
